FAERS Safety Report 24565789 (Version 1)
Quarter: 2024Q4

REPORT INFORMATION
  Report Type: Spontaneous
  Country: US (occurrence: US)
  Receive Date: 20241030
  Receipt Date: 20241030
  Transmission Date: 20250114
  Serious: Yes (Other)
  Sender: PFIZER
  Company Number: US-PFIZER INC-202400288790

PATIENT
  Age: 58 Year
  Sex: Female
  Weight: 86.18 kg

DRUGS (1)
  1. XELJANZ [Suspect]
     Active Substance: TOFACITINIB CITRATE
     Dosage: UNK
     Dates: start: 2023

REACTIONS (2)
  - Pulmonary embolism [Unknown]
  - Chest discomfort [Unknown]
